FAERS Safety Report 17350590 (Version 3)
Quarter: 2023Q4

REPORT INFORMATION
  Report Type: Spontaneous
  Country: US (occurrence: US)
  Receive Date: 20200130
  Receipt Date: 20231011
  Transmission Date: 20240110
  Serious: Yes (Other)
  Sender: FDA-Public Use
  Company Number: US-GILEAD-2020-0448729

PATIENT
  Age: 39 Year
  Sex: Male

DRUGS (20)
  1. VIREAD [Suspect]
     Active Substance: TENOFOVIR DISOPROXIL FUMARATE
     Indication: HIV infection
     Dosage: UNK
     Route: 048
     Dates: start: 2010, end: 2015
  2. TRUVADA [Suspect]
     Active Substance: EMTRICITABINE\TENOFOVIR DISOPROXIL FUMARATE
     Indication: HIV infection
     Dosage: UNK
     Route: 048
     Dates: start: 20090901, end: 20160308
  3. TRUVADA [Suspect]
     Active Substance: EMTRICITABINE\TENOFOVIR DISOPROXIL FUMARATE
     Dosage: UNK
     Route: 048
     Dates: start: 20090901, end: 201509
  4. DESCOVY [Concomitant]
     Active Substance: EMTRICITABINE\TENOFOVIR ALAFENAMIDE FUMARATE
  5. VITAMIN D3 [Concomitant]
     Active Substance: CHOLECALCIFEROL
  6. COMBIVIR [Concomitant]
     Active Substance: LAMIVUDINE\ZIDOVUDINE
  7. CRIXIVAN [Concomitant]
     Active Substance: INDINAVIR SULFATE
  8. EPIVIR [Concomitant]
     Active Substance: LAMIVUDINE
  9. EPZICOM [Concomitant]
     Active Substance: ABACAVIR SULFATE\LAMIVUDINE
  10. FUZEON [Concomitant]
     Active Substance: ENFUVIRTIDE
  11. ISENTRESS [Concomitant]
     Active Substance: RALTEGRAVIR POTASSIUM
  12. KALETRA [Concomitant]
     Active Substance: LOPINAVIR\RITONAVIR
  13. NORVIR [Concomitant]
     Active Substance: RITONAVIR
  14. RETROVIR [Concomitant]
     Active Substance: ZIDOVUDINE
  15. REYATAZ [Concomitant]
     Active Substance: ATAZANAVIR SULFATE
  16. SUSTIVA [Concomitant]
     Active Substance: EFAVIRENZ
  17. TIVICAY [Concomitant]
     Active Substance: DOLUTEGRAVIR SODIUM
  18. VIDEX [Concomitant]
     Active Substance: DIDANOSINE
  19. VIRAMUNE [Concomitant]
     Active Substance: NEVIRAPINE
  20. ZERIT [Concomitant]
     Active Substance: STAVUDINE

REACTIONS (9)
  - Chronic kidney disease [Not Recovered/Not Resolved]
  - Ankle fracture [Not Recovered/Not Resolved]
  - Pain [Not Recovered/Not Resolved]
  - Emotional distress [Not Recovered/Not Resolved]
  - Anxiety [Not Recovered/Not Resolved]
  - Anhedonia [Not Recovered/Not Resolved]
  - Economic problem [Not Recovered/Not Resolved]
  - Osteopenia [Not Recovered/Not Resolved]
  - Depression [Not Recovered/Not Resolved]

NARRATIVE: CASE EVENT DATE: 20111227
